FAERS Safety Report 25630458 (Version 2)
Quarter: 2025Q3

REPORT INFORMATION
  Report Type: Spontaneous
  Country: EU (occurrence: EU)
  Receive Date: 20250801
  Receipt Date: 20250805
  Transmission Date: 20251021
  Serious: Yes (Other)
  Sender: BRISTOL-MYERS SQUIBB COMPANY
  Company Number: EU-BRISTOL-MYERS SQUIBB COMPANY-2025-107092

PATIENT
  Age: 63 Year
  Sex: Female

DRUGS (3)
  1. CAMZYOS [Suspect]
     Active Substance: MAVACAMTEN
     Indication: Hypertrophic cardiomyopathy
     Dates: start: 2025, end: 2025
  2. CAMZYOS [Suspect]
     Active Substance: MAVACAMTEN
     Dates: start: 2025, end: 2025
  3. CAMZYOS [Suspect]
     Active Substance: MAVACAMTEN
     Dates: start: 2025, end: 2025

REACTIONS (1)
  - Depression [Recovered/Resolved]

NARRATIVE: CASE EVENT DATE: 20250201
